FAERS Safety Report 9881896 (Version 1)
Quarter: 2014Q1

REPORT INFORMATION
  Report Type: Spontaneous
  Country: US (occurrence: None)
  Receive Date: 20140205
  Receipt Date: 20140205
  Transmission Date: 20141002
  Serious: Yes (Other)
  Sender: FDA-Public Use
  Company Number: IMP_07370_2014

PATIENT
  Age: 27 Year
  Sex: Female

DRUGS (11)
  1. DIGOXIN [Suspect]
     Indication: PRODUCT USED FOR UNKNOWN INDICATION
     Route: 048
  2. CIPROFLOXACIN [Suspect]
     Dosage: 500 MG, DAILY, ENTERALLY
  3. ASPIRIN [Concomitant]
  4. LOSARTAN [Concomitant]
  5. NAPROXEN [Concomitant]
  6. TOPIRAMATE [Concomitant]
  7. LORATADINE [Suspect]
  8. METOPROLOL [Concomitant]
  9. TRAZODONE [Concomitant]
  10. LANSOPRAZOLE [Concomitant]
  11. ORTHO TRI-CYCLEN [Suspect]

REACTIONS (4)
  - Nausea [None]
  - Decreased appetite [None]
  - Toxicity to various agents [None]
  - Drug interaction [None]
